FAERS Safety Report 12990837 (Version 1)
Quarter: 2016Q4

REPORT INFORMATION
  Report Type: Spontaneous
  Country: US (occurrence: US)
  Receive Date: 20161130
  Receipt Date: 20161130
  Transmission Date: 20170207
  Serious: Yes (Hospitalization)
  Sender: FDA-Public Use
  Company Number: None

PATIENT
  Age: 42 Year
  Sex: Female

DRUGS (1)
  1. MIPOMERSEN [Suspect]
     Active Substance: MIPOMERSEN SODIUM
     Indication: TYPE IIA HYPERLIPIDAEMIA
     Dosage: ?          OTHER FREQUENCY:EVERY 2 WEEKS;?
     Route: 030

REACTIONS (5)
  - Pyrexia [None]
  - Myalgia [None]
  - Chest pain [None]
  - Post procedural complication [None]
  - Haematuria [None]

NARRATIVE: CASE EVENT DATE: 20161028
